FAERS Safety Report 16563431 (Version 4)
Quarter: 2021Q2

REPORT INFORMATION
  Report Type: Other
  Country: GB (occurrence: GB)
  Receive Date: 20190712
  Receipt Date: 20210503
  Transmission Date: 20210716
  Serious: Yes (Hospitalization, Other)
  Sender: FDA-Public Use
  Company Number: GB-ROCHE-2354150

PATIENT
  Sex: Female

DRUGS (5)
  1. ADCAL (UNITED KINGDOM) [Concomitant]
     Active Substance: CALCIUM CARBONATE
  2. ROACTEMRA [Suspect]
     Active Substance: TOCILIZUMAB
     Indication: RHEUMATOID ARTHRITIS
     Route: 058
     Dates: start: 20190607
  3. FORSTEO [Concomitant]
     Active Substance: TERIPARATIDE
  4. DICLOFENAC [Concomitant]
     Active Substance: DICLOFENAC
  5. ROACTEMRA [Suspect]
     Active Substance: TOCILIZUMAB
     Route: 058
     Dates: start: 20190628

REACTIONS (6)
  - Eye disorder [Unknown]
  - Pain [Unknown]
  - Pain in extremity [Unknown]
  - Macular degeneration [Unknown]
  - Arthritis [Unknown]
  - Arthralgia [Unknown]
